FAERS Safety Report 23052709 (Version 7)
Quarter: 2024Q2

REPORT INFORMATION
  Report Type: Spontaneous
  Country: US (occurrence: US)
  Receive Date: 20231011
  Receipt Date: 20240603
  Transmission Date: 20240715
  Serious: No
  Sender: FDA-Public Use
  Company Number: US-SA-SAC20231009001368

PATIENT
  Age: 13 Year
  Sex: Male

DRUGS (6)
  1. ELOCTATE [Suspect]
     Active Substance: EFMOROCTOCOG ALFA
     Indication: Haemorrhage
     Dosage: 3202 U (+/- 10%), PRN (EVERY 24 HOURS AS NEEDED FOR MODERATE TO SEVERE BLEEDING)
     Route: 042
  2. ELOCTATE [Suspect]
     Active Substance: EFMOROCTOCOG ALFA
     Indication: Haemorrhage
     Dosage: 3202 U (+/- 10%), PRN (EVERY 24 HOURS AS NEEDED FOR MODERATE TO SEVERE BLEEDING)
     Route: 042
  3. ELOCTATE [Suspect]
     Active Substance: EFMOROCTOCOG ALFA
     Dosage: 3000 U, PRN
     Route: 042
  4. ELOCTATE [Suspect]
     Active Substance: EFMOROCTOCOG ALFA
     Dosage: 3000 U, PRN
     Route: 042
  5. ELOCTATE [Suspect]
     Active Substance: EFMOROCTOCOG ALFA
     Dosage: 3200 U
     Route: 065
  6. ELOCTATE [Suspect]
     Active Substance: EFMOROCTOCOG ALFA
     Dosage: 3200 U
     Route: 065

REACTIONS (16)
  - Fall [Unknown]
  - Ear infection [Unknown]
  - Ear pain [Recovering/Resolving]
  - Pharyngitis streptococcal [Unknown]
  - Oropharyngeal pain [Recovering/Resolving]
  - Pain [Unknown]
  - Oropharyngeal discomfort [Unknown]
  - Conjunctivitis [Unknown]
  - Viral infection [Unknown]
  - Vomiting [Unknown]
  - Pain [Unknown]
  - Respiratory tract congestion [Unknown]
  - Headache [Unknown]
  - Limb injury [Unknown]
  - Haemorrhage [Recovered/Resolved]
  - Epistaxis [Unknown]

NARRATIVE: CASE EVENT DATE: 20230901
